FAERS Safety Report 7814489-9 (Version None)
Quarter: 2011Q4

REPORT INFORMATION
  Report Type: 
  Country: None (occurrence: None)
  Receive Date: 20111014
  Receipt Date: 20111012
  Transmission Date: 20120403
  Serious: Yes (Death)
  Sender: FDA-Public Use
  Company Number: PHFR2011GB04762

PATIENT
  Sex: Male

DRUGS (3)
  1. CLOZARIL [Suspect]
     Indication: SCHIZOPHRENIA
     Route: 048
     Dates: start: 20051011
  2. DEPIXOL [Concomitant]
     Indication: PSYCHOTIC DISORDER
     Dosage: 60 MG, BIW
     Route: 030
  3. FLUOXETINE [Concomitant]
     Dosage: 20 MG/ DAY
     Route: 048

REACTIONS (2)
  - NO THERAPEUTIC RESPONSE [None]
  - COMPLETED SUICIDE [None]
